FAERS Safety Report 8351294-1 (Version None)
Quarter: 2012Q2

REPORT INFORMATION
  Report Type: 
  Country: None (occurrence: None)
  Receive Date: 20120510
  Receipt Date: 20120430
  Transmission Date: 20120825
  Serious: Yes (Disabling, Other)
  Sender: FDA-Public Use
  Company Number: US-MILLENNIUM PHARMACEUTICALS, INC.-2012-03040

PATIENT
  Age: 59 Year
  Sex: Male

DRUGS (1)
  1. VELCADE [Suspect]
     Indication: RENAL AMYLOIDOSIS

REACTIONS (5)
  - PROTEINURIA [None]
  - ORTHOSTATIC HYPOTENSION [None]
  - GENERALISED OEDEMA [None]
  - DISEASE PROGRESSION [None]
  - SYNCOPE [None]
